FAERS Safety Report 21644128 (Version 1)
Quarter: 2022Q4

REPORT INFORMATION
  Report Type: Spontaneous
  Country: DE (occurrence: DE)
  Receive Date: 20221125
  Receipt Date: 20221125
  Transmission Date: 20230113
  Serious: Yes (Other)
  Sender: FDA-Public Use
  Company Number: DE-002147023-NVSC2022DE256449

PATIENT
  Age: 30 Year
  Sex: Male

DRUGS (1)
  1. ATRIANCE [Suspect]
     Active Substance: NELARABINE
     Indication: Product used for unknown indication
     Dosage: UNK
     Route: 065

REACTIONS (1)
  - Hepatic enzyme increased [Unknown]
